FAERS Safety Report 20299378 (Version 2)
Quarter: 2022Q1

REPORT INFORMATION
  Report Type: Spontaneous
  Country: SA (occurrence: SA)
  Receive Date: 20220105
  Receipt Date: 20220114
  Transmission Date: 20220423
  Serious: Yes (Other)
  Sender: FDA-Public Use
  Company Number: SA-MLMSERVICE-20211221-3279557-1

PATIENT
  Age: 23 Year
  Sex: Female

DRUGS (3)
  1. SIROLIMUS [Interacting]
     Active Substance: SIROLIMUS
     Indication: Malformation venous
     Dosage: UNK
     Dates: start: 2017
  2. SIROLIMUS [Interacting]
     Active Substance: SIROLIMUS
     Indication: Focal dyscognitive seizures
  3. CARBAMAZEPINE [Interacting]
     Active Substance: CARBAMAZEPINE
     Indication: Focal dyscognitive seizures
     Dosage: UNK
     Dates: start: 2017

REACTIONS (3)
  - Drug interaction [Unknown]
  - Off label use [Unknown]
  - Drug effective for unapproved indication [Unknown]
